FAERS Safety Report 4639231-4 (Version None)
Quarter: 2005Q2

REPORT INFORMATION
  Report Type: 
  Country: None (occurrence: None)
  Receive Date: 20050419
  Receipt Date: 20040121
  Transmission Date: 20051028
  Serious: Yes (Hospitalization)
  Sender: FDA-Public Use
  Company Number: US-SANOFI-SYNTHELABO-A03200400159

PATIENT
  Sex: Male
  Weight: 81.6 kg

DRUGS (1)
  1. AMBIEN [Suspect]
     Indication: DRUG USE FOR UNKNOWN INDICATION
     Route: 048
     Dates: start: 20031003, end: 20031003

REACTIONS (4)
  - AMNESIA [None]
  - DELIRIUM [None]
  - PATIENT RESTRAINT [None]
  - PSYCHOTIC DISORDER [None]
